FAERS Safety Report 10971565 (Version 1)
Quarter: 2015Q1

REPORT INFORMATION
  Report Type: Spontaneous
  Country: JP (occurrence: JP)
  Receive Date: 20150331
  Receipt Date: 20150331
  Transmission Date: 20150721
  Serious: Yes (Hospitalization)
  Sender: FDA-Public Use
  Company Number: JP-BAYER-2015-067263

PATIENT
  Age: 70 Year
  Sex: Male

DRUGS (8)
  1. ALDACTONE [Suspect]
     Active Substance: SPIRONOLACTONE
     Indication: PULMONARY OEDEMA
     Dosage: DAILY DOSE 25 MG
     Route: 048
     Dates: start: 20150202
  2. LIVACT [Suspect]
     Active Substance: AMINO ACIDS
     Dosage: DAILY DOSE 12.4499998 G
     Route: 048
  3. ADALAT [Suspect]
     Active Substance: NIFEDIPINE
     Dosage: DAILY DOSE 20 MG
     Route: 048
  4. URSO [Suspect]
     Active Substance: URSODIOL
     Dosage: DAILY DOSE 300 MG
     Route: 048
  5. METHYCOBAL [Suspect]
     Active Substance: METHYLCOBALAMIN
     Dosage: DAILY DOSE 1500 ?G
     Route: 048
  6. OLMETEC [Suspect]
     Active Substance: OLMESARTAN MEDOXOMIL
     Dosage: DAILY DOSE 40 MG
     Route: 048
  7. VASOLAN [Suspect]
     Active Substance: VERAPAMIL HYDROCHLORIDE
     Dosage: DAILY DOSE 120 MG
     Route: 048
  8. SUNRYTHM [Suspect]
     Active Substance: PILSICAINIDE HYDROCHLORIDE
     Dosage: DAILY DOSE 150 MG
     Route: 048

REACTIONS (2)
  - Hyperventilation [Unknown]
  - Lung carcinoma cell type unspecified recurrent [Unknown]

NARRATIVE: CASE EVENT DATE: 20150203
